FAERS Safety Report 10206319 (Version 1)
Quarter: 2014Q2

REPORT INFORMATION
  Report Type: Spontaneous
  Country: GB (occurrence: GB)
  Receive Date: 20140530
  Receipt Date: 20140530
  Transmission Date: 20141212
  Serious: Yes (Other)
  Sender: FDA-Public Use
  Company Number: PHFR2014GB003664

PATIENT
  Age: 26 Year
  Sex: Female
  Weight: 61 kg

DRUGS (3)
  1. RIAMET [Suspect]
     Indication: PLASMODIUM FALCIPARUM INFECTION
     Dosage: 4 TABLETS
     Route: 048
     Dates: start: 20140430, end: 20140507
  2. ARTESUNATE [Concomitant]
     Dosage: UNK
     Route: 042
     Dates: start: 201404
  3. DOXYCYCLINE [Concomitant]
     Dosage: UNK

REACTIONS (1)
  - Haemolysis [Recovering/Resolving]
